FAERS Safety Report 20350291 (Version 1)
Quarter: 2022Q1

REPORT INFORMATION
  Report Type: Spontaneous
  Country: US (occurrence: US)
  Receive Date: 20220119
  Receipt Date: 20220119
  Transmission Date: 20220423
  Serious: Yes (Hospitalization)
  Sender: FDA-Public Use
  Company Number: US-RECORDATI RARE DISEASE INC.-2022000078

PATIENT

DRUGS (5)
  1. DACTINOMYCIN [Suspect]
     Active Substance: DACTINOMYCIN
     Indication: Product used for unknown indication
     Dosage: 0.05 MG/KG, (IV OVER 1-5 MINUTES ON DAY 1 OF CYCLES 1 AND 3; ON DAY 1 OF CYCLES 5)
     Route: 042
     Dates: start: 20190314
  2. TEMSIROLIMUS [Suspect]
     Active Substance: TEMSIROLIMUS
     Indication: Product used for unknown indication
     Dosage: 15 MG/M2 CYCLICAL OVER 30-60 MINUTES ON DAYS 1, 8, AND 15 FOR CYCLE 1-4
     Route: 042
     Dates: start: 20190314
  3. VINCRISTINE SULFATE [Suspect]
     Active Substance: VINCRISTINE SULFATE
     Indication: Product used for unknown indication
     Dosage: 1.5 MG/M2 CYCLICAL (IV OVER 1 MINUTE OR INFUSION VIA MINIBAG ON DAYS 1, 8, AND 15 FOR CYCLE 1-4
     Route: 042
     Dates: start: 20190314
  4. CAMPTOSAR [Suspect]
     Active Substance: IRINOTECAN HYDROCHLORIDE
     Indication: Product used for unknown indication
     Dosage: 50 MG/M2, (IV OVER 90 MINUTES ON DAYS 1-5 OF CYCLES 2 AND 4; ON DAYS 1-5 OF CYCLES 6 AND 7)
     Route: 042
     Dates: start: 20190405
  5. CYCLOPHOSPHAMIDE [Suspect]
     Active Substance: CYCLOPHOSPHAMIDE
     Indication: Product used for unknown indication
     Dosage: 1200 MG/M2 (IV OVER 60 MINUTES ON DAY 1 OF CYCLES 1 AND 3; ON DAY 1 OF CYCLES 5)
     Route: 042
     Dates: start: 20190314

REACTIONS (6)
  - Dehydration [Recovering/Resolving]
  - Dysuria [Unknown]
  - Pyrexia [Recovering/Resolving]
  - Abdominal pain [Unknown]
  - Diarrhoea [Unknown]
  - Vomiting [Unknown]

NARRATIVE: CASE EVENT DATE: 20190801
